FAERS Safety Report 16040311 (Version 1)
Quarter: 2019Q2

REPORT INFORMATION
  Report Type: Spontaneous
  Country: US (occurrence: US)
  Receive Date: 20190305
  Receipt Date: 20190305
  Transmission Date: 20190711
  Serious: Yes (Life-Threatening, Hospitalization)
  Sender: FDA-Public Use
  Company Number: None

PATIENT
  Age: 17 Year
  Sex: Female
  Weight: 56.25 kg

DRUGS (1)
  1. YAZ [Suspect]
     Active Substance: DROSPIRENONE\ETHINYL ESTRADIOL
     Indication: CONTRACEPTION
     Dates: start: 20180901, end: 20190301

REACTIONS (6)
  - Mood swings [None]
  - Suicide attempt [None]
  - Anxiety [None]
  - Suicidal ideation [None]
  - Self esteem decreased [None]
  - Intentional overdose [None]

NARRATIVE: CASE EVENT DATE: 20190216
